FAERS Safety Report 5040565-2 (Version None)
Quarter: 2006Q2

REPORT INFORMATION
  Report Type: 
  Country: None (occurrence: None)
  Receive Date: 20060630
  Receipt Date: 20060623
  Transmission Date: 20061013
  Serious: Yes (Other)
  Sender: FDA-Public Use
  Company Number: FR-ABBOTT-06P-056-0336898-00

PATIENT

DRUGS (1)
  1. DEPAKOTE [Suspect]
     Indication: MANIA
     Route: 048

REACTIONS (5)
  - ABNORMAL BEHAVIOUR [None]
  - CONFUSIONAL STATE [None]
  - HALLUCINATION [None]
  - HYPERAMMONAEMIA [None]
  - PSEUDODEMENTIA [None]
